FAERS Safety Report 9781593 (Version 2)
Quarter: 2013Q4

REPORT INFORMATION
  Report Type: Spontaneous
  Country: US (occurrence: US)
  Receive Date: 20131224
  Receipt Date: 20131230
  Transmission Date: 20140711
  Serious: No
  Sender: FDA-Public Use
  Company Number: US-TEVA-445646USA

PATIENT
  Sex: Male

DRUGS (4)
  1. ADVAIR [Suspect]
  2. TUMS [Suspect]
  3. ROLAIDS [Suspect]
  4. PRO-AIR [Concomitant]
     Indication: DYSPNOEA
     Route: 055
     Dates: start: 2010

REACTIONS (3)
  - Therapeutic response decreased [Unknown]
  - Dyspnoea [Unknown]
  - Product odour abnormal [Recovered/Resolved]
